FAERS Safety Report 24721111 (Version 1)
Quarter: 2024Q4

REPORT INFORMATION
  Report Type: Spontaneous
  Country: US (occurrence: US)
  Receive Date: 20241211
  Receipt Date: 20241211
  Transmission Date: 20250115
  Serious: Yes (Other)
  Sender: TEVA
  Company Number: US-TEVA-VS-3272579

PATIENT
  Age: 78 Year
  Sex: Male

DRUGS (1)
  1. DIFLUNISAL [Suspect]
     Active Substance: DIFLUNISAL
     Indication: Product used for unknown indication
     Route: 065

REACTIONS (1)
  - Atrioventricular block complete [Unknown]
